FAERS Safety Report 17874065 (Version 1)
Quarter: 2020Q2

REPORT INFORMATION
  Report Type: Spontaneous
  Country: US (occurrence: US)
  Receive Date: 20200609
  Receipt Date: 20200609
  Transmission Date: 20200714
  Serious: Yes (Hospitalization)
  Sender: FDA-Public Use
  Company Number: US-SA-2020SA146487

PATIENT

DRUGS (24)
  1. OMNIPAQUE [Concomitant]
     Active Substance: IOHEXOL
     Dosage: 110 UNK, QD
     Route: 065
     Dates: start: 20191008, end: 20191008
  2. ACETYLSALICYLIC ACID [Suspect]
     Active Substance: ASPIRIN
     Dosage: 100 MG, QD
     Route: 048
     Dates: start: 20190801, end: 20190818
  3. ATORVASTATIN [Concomitant]
     Active Substance: ATORVASTATIN
     Dosage: 40 MG, QD
     Route: 065
     Dates: start: 20190513
  4. ISOVUE 370 [Concomitant]
     Active Substance: IOPAMIDOL
     Dosage: 100 UNK, QD
     Route: 065
     Dates: start: 20190904, end: 20190904
  5. POTASSIUM CHLORIDE. [Concomitant]
     Active Substance: POTASSIUM CHLORIDE
     Dosage: 20 UNK, QD
     Route: 065
     Dates: start: 20191008, end: 20191008
  6. NITROGLYCERINE [Concomitant]
     Active Substance: NITROGLYCERIN
     Dosage: 0.5 MG, QD
     Route: 065
     Dates: start: 20191008, end: 20191008
  7. CLOPIDOGREL BISULFATE. [Suspect]
     Active Substance: CLOPIDOGREL BISULFATE
     Dosage: 75 MG, QD
     Route: 048
     Dates: start: 20190801, end: 20190818
  8. ACETYLSALICYLIC ACID [Suspect]
     Active Substance: ASPIRIN
     Dosage: 100 MG, QD
     Route: 048
     Dates: start: 20190731, end: 20190731
  9. PHENYLEPHRINE [Concomitant]
     Active Substance: PHENYLEPHRINE HYDROCHLORIDE
     Dosage: 400 UG, QD
     Route: 065
     Dates: start: 20191008, end: 20191008
  10. CLOPIDOGREL BISULFATE. [Suspect]
     Active Substance: CLOPIDOGREL BISULFATE
     Dosage: 75 MG, QD
     Route: 048
     Dates: start: 20190731, end: 20190731
  11. AMLODIPINE [Concomitant]
     Active Substance: AMLODIPINE BESYLATE
     Dosage: 5 MG, QD
     Route: 065
     Dates: start: 20190513, end: 20191008
  12. METOPROLOL. [Concomitant]
     Active Substance: METOPROLOL
     Dosage: 25 MG, QD
     Route: 065
     Dates: end: 20191008
  13. LIDOCAINE. [Concomitant]
     Active Substance: LIDOCAINE
     Dosage: 70 MG, QD
     Route: 065
     Dates: start: 20191008, end: 20191008
  14. ACETYLSALICYLIC ACID [Suspect]
     Active Substance: ASPIRIN
     Dosage: 100 MG, QD
     Route: 048
     Dates: start: 20190926, end: 20190926
  15. ACETYLSALICYLIC ACID [Suspect]
     Active Substance: ASPIRIN
     Dosage: 100 MG, QD
     Route: 048
     Dates: start: 20190820, end: 20190924
  16. ACETYLSALICYLIC ACID [Suspect]
     Active Substance: ASPIRIN
     Dosage: 100 MG, QD
     Route: 048
     Dates: start: 20190925, end: 20190925
  17. ONDANSETRON [Concomitant]
     Active Substance: ONDANSETRON
     Dosage: 4 MG, QD
     Route: 065
     Dates: start: 20191008, end: 20191008
  18. PROPOFOL. [Concomitant]
     Active Substance: PROPOFOL
     Dosage: 200 MG, QD
     Route: 065
     Dates: start: 20191008, end: 20191008
  19. EPHEDRINE. [Concomitant]
     Active Substance: EPHEDRINE
     Dosage: 25 MG, QD
     Route: 065
     Dates: start: 20191008, end: 20191008
  20. FENTANYL. [Concomitant]
     Active Substance: FENTANYL
     Dosage: 25 UG, QD
     Route: 065
     Dates: start: 20191008, end: 20191008
  21. CEFAZOLIN [Concomitant]
     Active Substance: CEFAZOLIN
     Dosage: 1 G, QD
     Route: 065
     Dates: start: 20191008, end: 20191008
  22. CLOPIDOGREL BISULFATE. [Suspect]
     Active Substance: CLOPIDOGREL BISULFATE
     Dosage: 75 MG, QD
     Route: 048
     Dates: start: 20190819, end: 20190819
  23. ACETYLSALICYLIC ACID [Suspect]
     Active Substance: ASPIRIN
     Dosage: 100 MG, QD
     Route: 048
     Dates: start: 20190819, end: 20190819
  24. ESCITALOPRAM [Concomitant]
     Active Substance: ESCITALOPRAM OXALATE
     Dosage: 10 MG, QD
     Route: 065
     Dates: start: 20190915

REACTIONS (1)
  - Cerebral arteriosclerosis [Recovered/Resolved]

NARRATIVE: CASE EVENT DATE: 20191008
